FAERS Safety Report 21756262 (Version 1)
Quarter: 2022Q4

REPORT INFORMATION
  Report Type: Spontaneous
  Country: US (occurrence: US)
  Receive Date: 20221220
  Receipt Date: 20221220
  Transmission Date: 20230112
  Serious: Yes (Hospitalization)
  Sender: FDA-Public Use
  Company Number: US-CARA THERAPEUTICS, INC.-2022-00075-US

PATIENT

DRUGS (20)
  1. KORSUVA [Suspect]
     Active Substance: DIFELIKEFALIN ACETATE
     Indication: Pruritus
     Dosage: 35 MICROGRAM, TIW
     Route: 042
     Dates: start: 20220624, end: 20220713
  2. ATORVASTATIN [Concomitant]
     Active Substance: ATORVASTATIN
     Indication: Blood cholesterol
     Dosage: 20 MILLIGRAM, QD
  3. LANTUS [Concomitant]
     Active Substance: INSULIN GLARGINE
     Dosage: 2 UNITED STATES PHARMACOPEIA UNIT, AC
  4. AURYXIA [Concomitant]
     Active Substance: TETRAFERRIC TRICITRATE DECAHYDRATE
     Indication: Blood phosphorus
     Dosage: 210 MILLIGRAM ^EVERY MEAL^
  5. AURYXIA [Concomitant]
     Active Substance: TETRAFERRIC TRICITRATE DECAHYDRATE
     Indication: End stage renal disease
  6. CLONIDINE [Concomitant]
     Active Substance: CLONIDINE
     Indication: Blood pressure measurement
     Dosage: 0.1 MILLIGRAM, BID
  7. CLOPIDOGREL [Concomitant]
     Active Substance: CLOPIDOGREL BISULFATE
     Dosage: 75 MILLIGRAM, QD
  8. DOXEPIN [Concomitant]
     Active Substance: DOXEPIN
     Indication: Anxiety
     Dosage: 10 MILLIGRAM, QD
  9. GABAPENTIN [Concomitant]
     Active Substance: GABAPENTIN
     Indication: Neuropathy peripheral
     Dosage: 100 MILLIGRAM, TIW AFTER DIALYSIS
  10. GABAPENTIN [Concomitant]
     Active Substance: GABAPENTIN
     Indication: Neuralgia
  11. GABAPENTIN [Concomitant]
     Active Substance: GABAPENTIN
     Indication: Nervousness
  12. LOSARTAN [Concomitant]
     Active Substance: LOSARTAN
     Indication: Blood pressure measurement
     Dosage: 100 MILLIGRAM, QD
  13. ZOLOFT [Concomitant]
     Active Substance: SERTRALINE HYDROCHLORIDE
     Indication: Product used for unknown indication
     Dosage: 50 MILLIGRAM, QD
  14. RHOPRESSA [Concomitant]
     Active Substance: NETARSUDIL MESYLATE
     Indication: Cataract
     Dosage: 1 GTT DROPS ^IN EACH EYE AS DIRECTED^
     Route: 047
  15. BESIVANCE [Concomitant]
     Active Substance: BESIFLOXACIN
     Indication: Cataract
     Dosage: 1 GTT DROPS IN RIGHT EYE, TID
     Route: 047
  16. PROLENSA [Concomitant]
     Active Substance: BROMFENAC SODIUM
     Indication: Cataract
     Dosage: 1 GTT DROPS IN RIGHT EYE, QD
     Route: 047
  17. PREDNISOLONE ACETATE [Concomitant]
     Active Substance: PREDNISOLONE ACETATE
     Indication: Cataract
     Dosage: ^APPLY IN RIGHT EYE^, QD
     Route: 047
  18. DORZOLAMIDE HYDROCHLORIDE\TIMOLOL MALEATE [Concomitant]
     Active Substance: DORZOLAMIDE HYDROCHLORIDE\TIMOLOL MALEATE
     Indication: Cataract
     Dosage: 1 GTT DROPS ^IN BOTH EYES^, BID
     Route: 047
  19. BRIMONIDINE [Concomitant]
     Active Substance: BRIMONIDINE TARTRATE
     Indication: Cataract
     Dosage: 1 GTT DROPS ^IN BOTH EYES EVERY 8 HOURS^
     Route: 047
  20. TYLENOL [Concomitant]
     Active Substance: ACETAMINOPHEN
     Dosage: ^DOES ASK FOR TYLENOL SOMETIMES^

REACTIONS (4)
  - Mental status changes [Recovering/Resolving]
  - Somnambulism [Recovering/Resolving]
  - Sleep paralysis [Recovering/Resolving]
  - Drug ineffective [Unknown]

NARRATIVE: CASE EVENT DATE: 20220101
